FAERS Safety Report 5138079-4 (Version None)
Quarter: 2006Q4

REPORT INFORMATION
  Report Type: 
  Country: None (occurrence: None)
  Receive Date: 20061030
  Receipt Date: 20060412
  Transmission Date: 20070319
  Serious: No
  Sender: FDA-Public Use
  Company Number: US-GLAXOSMITHKLINE-A0601575A

PATIENT
  Age: 55 Year
  Sex: Female

DRUGS (5)
  1. ADVAIR HFA [Suspect]
     Indication: ASTHMA
     Dosage: 1PUFF PER DAY
     Route: 055
     Dates: start: 20060403, end: 20060407
  2. MULTI-VITAMIN [Concomitant]
  3. VIACTIV [Concomitant]
  4. TYLENOL [Concomitant]
  5. ACTONEL [Concomitant]

REACTIONS (4)
  - ABDOMINAL PAIN UPPER [None]
  - DRUG EFFECT DECREASED [None]
  - NAUSEA [None]
  - POOR QUALITY DRUG ADMINISTERED [None]
